FAERS Safety Report 20631684 (Version 1)
Quarter: 2022Q1

REPORT INFORMATION
  Report Type: Spontaneous
  Country: US (occurrence: None)
  Receive Date: 20220323
  Receipt Date: 20220323
  Transmission Date: 20220424
  Serious: Yes (Hospitalization, Disabling, Other)
  Sender: FDA-Public Use
  Company Number: None

PATIENT
  Age: 35 Year
  Sex: Female
  Weight: 63 kg

DRUGS (4)
  1. SUBLOCADE [Suspect]
     Active Substance: BUPRENORPHINE
     Indication: Drug dependence
     Dosage: OTHER FREQUENCY : ONE INJECTION;?
     Route: 058
  2. TRINTELLIX [Concomitant]
     Active Substance: VORTIOXETINE HYDROBROMIDE
  3. TOPAMAX [Concomitant]
     Active Substance: TOPIRAMATE
  4. ENPRESSE [Concomitant]
     Active Substance: ETHINYL ESTRADIOL\LEVONORGESTREL

REACTIONS (12)
  - Flushing [None]
  - Urticaria [None]
  - Feeling hot [None]
  - Hyperhidrosis [None]
  - Feeling cold [None]
  - Cold sweat [None]
  - Hypotension [None]
  - Lethargy [None]
  - Impaired driving ability [None]
  - Impaired work ability [None]
  - Suicide attempt [None]
  - Mental disorder [None]

NARRATIVE: CASE EVENT DATE: 20220222
